FAERS Safety Report 8083964-7 (Version None)
Quarter: 2012Q1

REPORT INFORMATION
  Report Type: 
  Country: None (occurrence: None)
  Receive Date: 20120128
  Receipt Date: 20110119
  Transmission Date: 20120608
  Serious: No
  Sender: FDA-Public Use
  Company Number: US-ABBOTT-11P-163-0699165-00

PATIENT
  Sex: Female
  Weight: 79.45 kg

DRUGS (9)
  1. HUMIRA [Suspect]
     Dates: start: 20100901
  2. HUMIRA [Suspect]
     Indication: PSORIATIC ARTHROPATHY
     Dates: start: 20100701
  3. KLONOPIN [Concomitant]
     Indication: RESTLESS LEGS SYNDROME
  4. POTASSIUM [Concomitant]
     Indication: RESTLESS LEGS SYNDROME
  5. CALCIUM [Concomitant]
     Indication: MINERAL SUPPLEMENTATION
  6. STOOL SOFTENERS [Concomitant]
     Indication: CONSTIPATION
  7. VITAMIN D [Concomitant]
     Indication: VITAMIN SUPPLEMENTATION
  8. PERCOCET [Concomitant]
     Indication: PAIN
  9. RESTARIL [Concomitant]
     Indication: SLEEP DISORDER

REACTIONS (7)
  - SINUSITIS [None]
  - NEUROPATHY PERIPHERAL [None]
  - NASOPHARYNGITIS [None]
  - PYREXIA [None]
  - MALAISE [None]
  - DRUG RESISTANCE [None]
  - NASAL CONGESTION [None]
